FAERS Safety Report 9848398 (Version 1)
Quarter: 2014Q1

REPORT INFORMATION
  Report Type: Spontaneous
  Country: US (occurrence: None)
  Receive Date: 20140122
  Receipt Date: 20140122
  Transmission Date: 20141002
  Serious: Yes (Death)
  Sender: FDA-Public Use
  Company Number: B0959154A

PATIENT
  Age: 35 Year
  Sex: Female

DRUGS (3)
  1. BUPROPION HCL [Suspect]
     Route: 048
  2. BUPROPION HCL [Suspect]
     Route: 048
  3. SERTRALINE [Suspect]
     Route: 048

REACTIONS (2)
  - Completed suicide [None]
  - Cardio-respiratory arrest [None]
